FAERS Safety Report 21545183 (Version 2)
Quarter: 2023Q1

REPORT INFORMATION
  Report Type: Spontaneous
  Country: US (occurrence: US)
  Receive Date: 20221103
  Receipt Date: 20230208
  Transmission Date: 20230418
  Serious: Yes (Other)
  Sender: FDA-Public Use
  Company Number: US-GILEAD-2022-0603470

PATIENT
  Sex: Male
  Weight: 94 kg

DRUGS (27)
  1. ATRIPLA [Suspect]
     Active Substance: EFAVIRENZ\EMTRICITABINE\TENOFOVIR DISOPROXIL FUMARATE
     Indication: HIV infection
     Dosage: UNK
     Route: 048
     Dates: start: 2004
  2. ATRIPLA [Suspect]
     Active Substance: EFAVIRENZ\EMTRICITABINE\TENOFOVIR DISOPROXIL FUMARATE
     Dosage: UNK
     Route: 048
     Dates: start: 201212, end: 201801
  3. TRUVADA [Suspect]
     Active Substance: EMTRICITABINE\TENOFOVIR DISOPROXIL FUMARATE
     Indication: HIV infection
     Dosage: UNK
     Route: 048
     Dates: start: 2004
  4. TRUVADA [Suspect]
     Active Substance: EMTRICITABINE\TENOFOVIR DISOPROXIL FUMARATE
     Dosage: UNK
     Route: 048
     Dates: start: 20060314, end: 201201
  5. DESCOVY [Concomitant]
     Active Substance: EMTRICITABINE\TENOFOVIR ALAFENAMIDE FUMARATE
  6. BIKTARVY [Concomitant]
     Active Substance: BICTEGRAVIR SODIUM\EMTRICITABINE\TENOFOVIR ALAFENAMIDE FUMARATE
  7. ALLOPURINOL [Concomitant]
     Active Substance: ALLOPURINOL
  8. ATORVASTATIN [Concomitant]
     Active Substance: ATORVASTATIN
  9. FENOFIBRATE [Concomitant]
     Active Substance: FENOFIBRATE
  10. EPZICOM [Concomitant]
     Active Substance: ABACAVIR SULFATE\LAMIVUDINE
  11. NORVIR [Concomitant]
     Active Substance: RITONAVIR
  12. LEXIVA [Concomitant]
     Active Substance: FOSAMPRENAVIR CALCIUM
  13. REYATAZ [Concomitant]
     Active Substance: ATAZANAVIR SULFATE
  14. TIVICAY [Concomitant]
     Active Substance: DOLUTEGRAVIR SODIUM
  15. AMBIEN [Concomitant]
     Active Substance: ZOLPIDEM TARTRATE
  16. ABILIFY [Concomitant]
     Active Substance: ARIPIPRAZOLE
  17. GABAPENTIN [Concomitant]
     Active Substance: GABAPENTIN
  18. IBUPROFEN [Concomitant]
     Active Substance: IBUPROFEN
  19. CLONAZEPAM [Concomitant]
     Active Substance: CLONAZEPAM
  20. METHOCARBAMOL [Concomitant]
     Active Substance: METHOCARBAMOL
  21. METOPROLOL [Concomitant]
     Active Substance: METOPROLOL
  22. OXYCODONE [Concomitant]
     Active Substance: OXYCODONE
  23. PREZISTA [Concomitant]
     Active Substance: DARUNAVIR ETHANOLATE
  24. VENLAFAXINE HYDROCHLORIDE [Concomitant]
     Active Substance: VENLAFAXINE HYDROCHLORIDE
  25. VENTOLIN HFA [Concomitant]
     Active Substance: ALBUTEROL SULFATE
  26. WELLBUTRIN [Concomitant]
     Active Substance: BUPROPION HYDROCHLORIDE
  27. ZOLOFT [Concomitant]
     Active Substance: SERTRALINE HYDROCHLORIDE

REACTIONS (9)
  - Osteoporosis [Unknown]
  - Bone demineralisation [Not Recovered/Not Resolved]
  - Pain [Not Recovered/Not Resolved]
  - Emotional distress [Not Recovered/Not Resolved]
  - Anxiety [Not Recovered/Not Resolved]
  - Anhedonia [Not Recovered/Not Resolved]
  - Wrist fracture [Recovered/Resolved]
  - Gout [Not Recovered/Not Resolved]
  - Blood triglycerides increased [Not Recovered/Not Resolved]

NARRATIVE: CASE EVENT DATE: 20100101
